FAERS Safety Report 25069273 (Version 1)
Quarter: 2025Q1

REPORT INFORMATION
  Report Type: Spontaneous
  Country: GB (occurrence: GB)
  Receive Date: 20250312
  Receipt Date: 20250312
  Transmission Date: 20250409
  Serious: Yes (Other)
  Sender: MYLAN
  Company Number: None

PATIENT
  Age: 51 Year
  Sex: Male

DRUGS (16)
  1. ATORVASTATIN [Suspect]
     Active Substance: ATORVASTATIN
     Indication: Amaurosis fugax
  2. ATORVASTATIN [Suspect]
     Active Substance: ATORVASTATIN
     Route: 065
  3. ATORVASTATIN [Suspect]
     Active Substance: ATORVASTATIN
     Route: 065
  4. ATORVASTATIN [Suspect]
     Active Substance: ATORVASTATIN
  5. LEVOTHYROXINE [Concomitant]
     Active Substance: LEVOTHYROXINE
     Indication: Hypothyroidism
  6. LEVOTHYROXINE [Concomitant]
     Active Substance: LEVOTHYROXINE
     Route: 065
  7. LEVOTHYROXINE [Concomitant]
     Active Substance: LEVOTHYROXINE
     Route: 065
  8. LEVOTHYROXINE [Concomitant]
     Active Substance: LEVOTHYROXINE
  9. AMLODIPINE [Concomitant]
     Active Substance: AMLODIPINE BESYLATE
     Indication: Amaurosis fugax
  10. AMLODIPINE [Concomitant]
     Active Substance: AMLODIPINE BESYLATE
     Route: 065
  11. AMLODIPINE [Concomitant]
     Active Substance: AMLODIPINE BESYLATE
     Route: 065
  12. AMLODIPINE [Concomitant]
     Active Substance: AMLODIPINE BESYLATE
  13. ASPIRIN [Concomitant]
     Active Substance: ASPIRIN
     Indication: Amaurosis fugax
  14. ASPIRIN [Concomitant]
     Active Substance: ASPIRIN
     Route: 065
  15. ASPIRIN [Concomitant]
     Active Substance: ASPIRIN
     Route: 065
  16. ASPIRIN [Concomitant]
     Active Substance: ASPIRIN

REACTIONS (4)
  - Joint stiffness [Not Recovered/Not Resolved]
  - Arthralgia [Recovered/Resolved with Sequelae]
  - Mobility decreased [Not Recovered/Not Resolved]
  - Gait disturbance [Unknown]
